FAERS Safety Report 10095414 (Version 1)
Quarter: 2014Q2

REPORT INFORMATION
  Report Type: Spontaneous
  Country: US (occurrence: None)
  Receive Date: 20140418
  Receipt Date: 20140418
  Transmission Date: 20141212
  Serious: Yes (Hospitalization, Other)
  Sender: FDA-Public Use
  Company Number: FK201401312

PATIENT
  Age: 83 Year
  Sex: Female

DRUGS (6)
  1. HYDRALAZINE INJECTION [Suspect]
     Indication: HYPERTENSION
     Dosage: 75 MG, 2 IN 1 D, UNKNOWN
  2. FELODIPINE (FELODIPINE) [Concomitant]
  3. FUROSEMIDE (FUROSEMIDE) [Concomitant]
  4. LEVOTHYROXINE (LEVOTHYROXINE) [Concomitant]
  5. LOSARTAN (LOSARTAN) [Concomitant]
  6. METOPROLOL (METOPROLOL) [Concomitant]

REACTIONS (6)
  - Glomerulonephritis rapidly progressive [None]
  - Hypersensitivity vasculitis [None]
  - Lupus-like syndrome [None]
  - Weight decreased [None]
  - Renal failure acute [None]
  - Anaemia of chronic disease [None]
